FAERS Safety Report 15427050 (Version 1)
Quarter: 2018Q3

REPORT INFORMATION
  Report Type: Spontaneous
  Country: US (occurrence: US)
  Receive Date: 20180925
  Receipt Date: 20180925
  Transmission Date: 20181010
  Serious: No
  Sender: FDA-Public Use
  Company Number: US-INDIVIOR LIMITED-INDV-109557-2018

PATIENT
  Sex: Female

DRUGS (3)
  1. SUBOXONE [Suspect]
     Active Substance: BUPRENORPHINE HYDROCHLORIDE\NALOXONE HYDROCHLORIDE
     Indication: DRUG DEPENDENCE
     Dosage: 8 MG, QID (TWO IN THE AM AND THEN TWO IN THE PM)
     Route: 060
     Dates: start: 2007
  2. SUBOXONE [Suspect]
     Active Substance: BUPRENORPHINE HYDROCHLORIDE\NALOXONE HYDROCHLORIDE
     Indication: DRUG DEPENDENCE
     Dosage: CUTTING 8MG FILM, ONE IN AM AND ONE IN PM
     Route: 002
  3. SUBOXONE [Suspect]
     Active Substance: BUPRENORPHINE HYDROCHLORIDE\NALOXONE HYDROCHLORIDE
     Dosage: ONE FILM IN THE MORNING
     Route: 002

REACTIONS (4)
  - Oral administration complication [Unknown]
  - Product use issue [Recovered/Resolved]
  - Prescribed overdose [Recovered/Resolved]
  - Wrong technique in product usage process [Unknown]
